FAERS Safety Report 5413001-1 (Version None)
Quarter: 2007Q3

REPORT INFORMATION
  Report Type: 
  Country: None (occurrence: None)
  Receive Date: 20070813
  Receipt Date: 20070803
  Transmission Date: 20080115
  Serious: Yes (Hospitalization)
  Sender: FDA-Public Use
  Company Number: DK-PFIZER INC-2007065728

PATIENT
  Sex: Female
  Weight: 57 kg

DRUGS (7)
  1. ZARATOR [Suspect]
     Indication: HYPERCHOLESTEROLAEMIA
     Route: 048
     Dates: start: 20070101, end: 20070314
  2. DETRUSITOL [Concomitant]
     Route: 048
  3. PREDNISOLONE [Concomitant]
     Route: 048
  4. CALCIUM CARBONATE [Concomitant]
     Route: 048
  5. PAMOL [Concomitant]
     Route: 048
  6. DOLOL [Concomitant]
     Route: 048
  7. AMLODIPINE [Concomitant]
     Route: 048

REACTIONS (1)
  - HEPATITIS [None]
